FAERS Safety Report 21103743 (Version 1)
Quarter: 2022Q3

REPORT INFORMATION
  Report Type: Spontaneous
  Country: US (occurrence: US)
  Receive Date: 20220720
  Receipt Date: 20220720
  Transmission Date: 20221027
  Serious: Yes (Other)
  Sender: FDA-Public Use
  Company Number: US-SA-SAC20220718001216

PATIENT
  Age: 71 Year
  Sex: Male

DRUGS (1)
  1. ZANTAC [Suspect]
     Active Substance: RANITIDINE HYDROCHLORIDE
     Indication: Dyspepsia
     Dosage: UNK, QD
     Dates: start: 200507, end: 201505

REACTIONS (3)
  - Oesophageal carcinoma [Recovering/Resolving]
  - Prostate cancer stage I [Recovering/Resolving]
  - Lung carcinoma cell type unspecified stage II [Recovering/Resolving]

NARRATIVE: CASE EVENT DATE: 20150801
